FAERS Safety Report 14405850 (Version 1)
Quarter: 2018Q1

REPORT INFORMATION
  Report Type: Spontaneous
  Country: US (occurrence: US)
  Receive Date: 20180118
  Receipt Date: 20180118
  Transmission Date: 20180509
  Serious: Yes (Other)
  Sender: FDA-Public Use
  Company Number: US-PROCTER_AND_GAMBLE-GS18003177

PATIENT
  Sex: Male

DRUGS (2)
  1. CREST [Suspect]
     Active Substance: SODIUM FLUORIDE
     Route: 002
  2. CREST [Suspect]
     Active Substance: SODIUM FLUORIDE
     Route: 002

REACTIONS (1)
  - Renal cancer [Not Recovered/Not Resolved]
